FAERS Safety Report 11867783 (Version 3)
Quarter: 2016Q2

REPORT INFORMATION
  Report Type: Report from Study
  Country: US (occurrence: US)
  Receive Date: 20151224
  Receipt Date: 20160609
  Transmission Date: 20160815
  Serious: Yes (Hospitalization, Other)
  Sender: FDA-Public Use
  Company Number: US-AMGEN-USASL2015136195

PATIENT
  Age: 87 Year
  Sex: Male

DRUGS (2)
  1. PREDNISONE. [Concomitant]
     Active Substance: PREDNISONE
  2. NPLATE [Suspect]
     Active Substance: ROMIPLOSTIM
     Indication: PRODUCT USED FOR UNKNOWN INDICATION
     Dosage: 100 MUG, Q2WK
     Route: 065
     Dates: start: 20100731

REACTIONS (10)
  - Platelet count decreased [Recovering/Resolving]
  - Platelet count abnormal [Unknown]
  - Drug dose omission [Unknown]
  - Cataract [Unknown]
  - Tooth disorder [Unknown]
  - Blood pressure diastolic decreased [Unknown]
  - Apathy [Unknown]
  - Ventricular extrasystoles [Unknown]
  - Incorrect drug administration duration [Unknown]
  - Haemorrhage [Unknown]
